FAERS Safety Report 10449424 (Version 1)
Quarter: 2014Q3

REPORT INFORMATION
  Report Type: Spontaneous
  Country: GB (occurrence: GB)
  Receive Date: 20140912
  Receipt Date: 20140912
  Transmission Date: 20150326
  Serious: Yes (Other)
  Sender: FDA-Public Use
  Company Number: GB-TEVA-506930ISR

PATIENT
  Age: 81 Year
  Sex: Female

DRUGS (1)
  1. GALANTAMINE [Suspect]
     Active Substance: GALANTAMINE
     Indication: DEMENTIA
     Route: 048

REACTIONS (3)
  - Arrhythmia [Recovered/Resolved]
  - Fall [Unknown]
  - Syncope [Recovered/Resolved]
